FAERS Safety Report 18673638 (Version 1)
Quarter: 2020Q4

REPORT INFORMATION
  Report Type: Spontaneous
  Country: US (occurrence: US)
  Receive Date: 20201229
  Receipt Date: 20201229
  Transmission Date: 20210114
  Serious: No
  Sender: FDA-Public Use
  Company Number: US-HORIZON-2020HZN02773

PATIENT
  Age: 1 Month
  Sex: Male

DRUGS (2)
  1. CITRULLINE [Concomitant]
     Active Substance: CITRULLINE
     Dosage: 1G/4G POWDER PACK
  2. RAVICTI [Suspect]
     Active Substance: GLYCEROL PHENYLBUTYRATE
     Indication: ORNITHINE TRANSCARBAMOYLASE DEFICIENCY
     Dosage: 0.5ML, ORAL, THREE TIMES DAILY ; TIME INTERVAL: 0.33 D
     Route: 050
     Dates: start: 20201121

REACTIONS (2)
  - Diarrhoea [Unknown]
  - Abdominal discomfort [Unknown]

NARRATIVE: CASE EVENT DATE: 202011
